FAERS Safety Report 23302067 (Version 1)
Quarter: 2023Q4

REPORT INFORMATION
  Report Type: Spontaneous
  Country: GB (occurrence: GB)
  Receive Date: 20231215
  Receipt Date: 20231215
  Transmission Date: 20240109
  Serious: Yes (Other)
  Sender: FDA-Public Use
  Company Number: GB-UCBSA-2023056821

PATIENT
  Sex: Female

DRUGS (4)
  1. KEPPRA [Suspect]
     Active Substance: LEVETIRACETAM
     Indication: Seizure
     Dosage: UNKNOWN
     Route: 065
     Dates: start: 2021
  2. KEPPRA [Suspect]
     Active Substance: LEVETIRACETAM
     Indication: Epilepsy
  3. PHENYTOIN [Suspect]
     Active Substance: PHENYTOIN
     Indication: Seizure
     Dosage: UNKNOWN
     Route: 065
  4. PHENYTOIN [Suspect]
     Active Substance: PHENYTOIN
     Indication: Epilepsy

REACTIONS (5)
  - Seizure [Unknown]
  - Urinary tract infection [Unknown]
  - Hypertonic bladder [Unknown]
  - Menopause [Unknown]
  - Drug interaction [Unknown]

NARRATIVE: CASE EVENT DATE: 20220101
